FAERS Safety Report 4530111-1 (Version None)
Quarter: 2004Q4

REPORT INFORMATION
  Report Type: 
  Country: None (occurrence: None)
  Receive Date: 20041217
  Receipt Date: 20041208
  Transmission Date: 20050328
  Serious: Yes (Disabling)
  Sender: FDA-Public Use
  Company Number: GB-ABBOTT-04P-167-0282736-00

PATIENT
  Sex: Female

DRUGS (3)
  1. EPILIM TABLETS [Suspect]
     Indication: AFFECTIVE DISORDER
     Dosage: DAILY DOSE BETWEEN 800 MG TO 1200 MG
     Route: 048
  2. EPILIM TABLETS [Suspect]
     Route: 065
  3. EPILIM TABLETS [Suspect]

REACTIONS (4)
  - ASTHENIA [None]
  - GRIP STRENGTH DECREASED [None]
  - PAIN [None]
  - SKIN INFLAMMATION [None]
